FAERS Safety Report 20878354 (Version 3)
Quarter: 2022Q4

REPORT INFORMATION
  Report Type: Report from Study
  Country: US (occurrence: US)
  Receive Date: 20220526
  Receipt Date: 20221011
  Transmission Date: 20230113
  Serious: No
  Sender: FDA-Public Use
  Company Number: US-GLAXOSMITHKLINE-US2021AMR198707

PATIENT

DRUGS (1)
  1. BELANTAMAB MAFODOTIN [Suspect]
     Active Substance: BELANTAMAB MAFODOTIN
     Indication: Product used for unknown indication
     Dosage: UNK
     Dates: start: 20210728, end: 20220624

REACTIONS (6)
  - Keratopathy [Unknown]
  - Visual acuity reduced [Recovered/Resolved]
  - Night blindness [Recovered/Resolved]
  - Photophobia [Recovered/Resolved]
  - Foreign body sensation in eyes [Recovered/Resolved]
  - Hospice care [Unknown]

NARRATIVE: CASE EVENT DATE: 20220228
